FAERS Safety Report 4465467-1 (Version None)
Quarter: 2004Q4

REPORT INFORMATION
  Report Type: 
  Country: None (occurrence: None)
  Receive Date: 20041001
  Receipt Date: 20040916
  Transmission Date: 20050328
  Serious: Yes (Death, Hospitalization)
  Sender: FDA-Public Use
  Company Number: 8888

PATIENT
  Age: 74 Year
  Sex: Male
  Weight: 87 kg

DRUGS (18)
  1. CYTARABINE [Suspect]
     Indication: ACUTE MYELOID LEUKAEMIA
     Dosage: 100 MG/M2 DAILY IV
     Route: 042
  2. DAUNORUBICIN HCL [Suspect]
     Indication: ACUTE MYELOID LEUKAEMIA
     Dosage: 45 MG/M2 DAILY IV
     Route: 042
  3. MDR-INTRAVENOUS FORMULATION [Suspect]
     Indication: ACUTE MYELOID LEUKAEMIA
     Dosage: 550 MG DAILY IV
     Route: 042
  4. VANCOMYCIN [Concomitant]
  5. CEFEPIME [Concomitant]
  6. AMIKACIN [Concomitant]
  7. ZOSYN [Concomitant]
  8. VORICONAZOLE [Concomitant]
  9. MAXZIDE [Concomitant]
  10. M.V.I. [Concomitant]
  11. ALLOPURINOL [Concomitant]
  12. ZOLPIDEM TARTRATE [Concomitant]
  13. SENNA [Concomitant]
  14. ACCUZYME [Concomitant]
  15. PREVACID [Concomitant]
  16. VALACYCLOVIR HCL [Concomitant]
  17. NYSTATIN [Concomitant]
  18. CLOTRIMAZOLE [Concomitant]

REACTIONS (11)
  - ARRHYTHMIA SUPRAVENTRICULAR [None]
  - BLOOD BILIRUBIN INCREASED [None]
  - DIALYSIS [None]
  - GAMMA-GLUTAMYLTRANSFERASE INCREASED [None]
  - GENERAL PHYSICAL HEALTH DETERIORATION [None]
  - HYPOTENSION [None]
  - INFECTION [None]
  - MULTI-ORGAN FAILURE [None]
  - NEUTROPENIA [None]
  - RENAL FAILURE [None]
  - SEPSIS [None]
